FAERS Safety Report 23939605 (Version 1)
Quarter: 2024Q2

REPORT INFORMATION
  Report Type: Spontaneous
  Country: US (occurrence: US)
  Receive Date: 20240605
  Receipt Date: 20240605
  Transmission Date: 20240715
  Serious: No
  Sender: FDA-Public Use
  Company Number: US-OTSUKA-2023_012227

PATIENT
  Age: 13 Year
  Sex: Female
  Weight: 47.3 kg

DRUGS (4)
  1. TOLVAPTAN [Suspect]
     Active Substance: TOLVAPTAN
     Indication: Inappropriate antidiuretic hormone secretion
     Dosage: 0.15 MG/KG, QD
     Route: 048
  2. TOLVAPTAN [Suspect]
     Active Substance: TOLVAPTAN
     Dosage: 0.15-0.3 MG/KG/DAY (7.5 MG DAILY OR TWICE DAILY)
     Route: 048
  3. TOLVAPTAN [Suspect]
     Active Substance: TOLVAPTAN
     Dosage: 0.08 MG/KG (3.5 MG DAILY OR EVERY OTHER DAY)
     Route: 048
  4. CONIVAPTAN [Concomitant]
     Active Substance: CONIVAPTAN
     Indication: Inappropriate antidiuretic hormone secretion
     Dosage: 0.2 MG/KG, QD
     Route: 042

REACTIONS (1)
  - Product use issue [Unknown]
